FAERS Safety Report 12672204 (Version 1)
Quarter: 2016Q3

REPORT INFORMATION
  Report Type: Report from Study
  Country: CH (occurrence: CH)
  Receive Date: 20160822
  Receipt Date: 20160822
  Transmission Date: 20161109
  Serious: Yes (Death, Other)
  Sender: FDA-Public Use
  Company Number: CH-BAYER-2016-157394

PATIENT

DRUGS (2)
  1. LOW-DOSE ASPIRIN [Suspect]
     Active Substance: ASPIRIN
     Dosage: UNK
     Route: 064
  2. PREGABALIN. [Suspect]
     Active Substance: PREGABALIN
     Dosage: UNK
     Route: 064

REACTIONS (8)
  - Respiratory distress [Fatal]
  - Foetal exposure during pregnancy [None]
  - Metabolic acidosis [Fatal]
  - Hypotonia [None]
  - Hepatocellular injury [Fatal]
  - Shock [Fatal]
  - Renal failure [Fatal]
  - Foetal growth restriction [None]
